FAERS Safety Report 21977136 (Version 3)
Quarter: 2023Q1

REPORT INFORMATION
  Report Type: Spontaneous
  Country: FI (occurrence: FI)
  Receive Date: 20230210
  Receipt Date: 20230321
  Transmission Date: 20230418
  Serious: Yes (Hospitalization, Other)
  Sender: FDA-Public Use
  Company Number: FI-Accord-299860

PATIENT
  Age: 26 Year
  Sex: Male
  Weight: 69 kg

DRUGS (11)
  1. CLOZAPINE [Interacting]
     Active Substance: CLOZAPINE
     Indication: Schizophrenia
     Dosage: INCREASED TO 650MG/DAY, DECREASED SLIGHTLY TO 600MG/DAY THEN 400 MG/DAY.
     Route: 048
     Dates: start: 202007, end: 202009
  2. DISULFIRAM [Interacting]
     Active Substance: DISULFIRAM
     Indication: Alcohol use disorder
     Route: 048
     Dates: start: 202009, end: 202011
  3. OLANZAPINE [Concomitant]
     Active Substance: OLANZAPINE
     Dosage: 10-20MG/D
     Dates: start: 2020
  4. CHLORPROTHIXENE HYDROCHLORIDE [Concomitant]
     Active Substance: CHLORPROTHIXENE HYDROCHLORIDE
     Dosage: 25MG- 100MG/D
     Dates: start: 2020
  5. BUPRENORPHINE [Concomitant]
     Active Substance: BUPRENORPHINE
     Dosage: LONG-ACTING INJECTABLE 16MG/1WEEK
     Dates: start: 2020
  6. SCOPOLAMINE [Concomitant]
     Active Substance: SCOPOLAMINE
     Indication: Salivary hypersecretion
     Route: 062
  7. OLANZAPINE [Concomitant]
     Active Substance: OLANZAPINE
     Dosage: 10-20MG/D
     Dates: start: 2020
  8. CHLORPROTHIXENE HYDROCHLORIDE [Concomitant]
     Active Substance: CHLORPROTHIXENE HYDROCHLORIDE
     Dosage: 25MG- 100MG/D
     Dates: start: 2020
  9. CLOZAPINE [Interacting]
     Active Substance: CLOZAPINE
     Indication: Schizophrenia
     Dosage: INCREASED TO 650MG/DAY, DECREASED SLIGHTLY TO 600MG/DAY THEN 400 MG/DAY.
     Route: 048
     Dates: start: 2020, end: 202011
  10. CLOZAPINE [Interacting]
     Active Substance: CLOZAPINE
     Indication: Schizophrenia
     Dosage: INCREASED TO 650MG/DAY, DECREASED SLIGHTLY TO 600MG/DAY THEN 400 MG/DAY.
     Route: 048
     Dates: start: 2020, end: 2020
  11. CLOZAPINE [Interacting]
     Active Substance: CLOZAPINE
     Indication: Schizophrenia
     Dosage: INCREASED TO 650MG/DAY, DECREASED SLIGHTLY TO 600MG/DAY THEN 400 MG/DAY.
     Route: 048
     Dates: start: 202009, end: 2020

REACTIONS (9)
  - Drug level increased [Recovered/Resolved]
  - Salivary hypersecretion [Unknown]
  - Body temperature increased [Unknown]
  - Food interaction [Unknown]
  - Potentiating drug interaction [Unknown]
  - Toxicity to various agents [Unknown]
  - Oropharyngeal pain [Recovered/Resolved]
  - Headache [Recovered/Resolved]
  - Vomiting [Recovered/Resolved]

NARRATIVE: CASE EVENT DATE: 20200101
